FAERS Safety Report 9356510 (Version 1)
Quarter: 2013Q2

REPORT INFORMATION
  Report Type: Report from Study
  Country: HU (occurrence: HU)
  Receive Date: 20130619
  Receipt Date: 20130619
  Transmission Date: 20140414
  Serious: Yes (Other)
  Sender: FDA-Public Use
  Company Number: HU-BAXTER-2013BAX022107

PATIENT
  Age: 63 Year
  Sex: Female

DRUGS (27)
  1. ENDOXAN 1G POR OLDATOS INJEKCI?HOZ [Suspect]
     Indication: DIFFUSE LARGE B-CELL LYMPHOMA
     Route: 042
     Dates: start: 20120514
  2. ENDOXAN 1G POR OLDATOS INJEKCI?HOZ [Suspect]
     Route: 042
     Dates: start: 20121010
  3. DOXORUBICIN [Suspect]
     Indication: DIFFUSE LARGE B-CELL LYMPHOMA
     Route: 042
     Dates: start: 20120514
  4. DOXORUBICIN [Suspect]
     Route: 042
     Dates: start: 20121010
  5. VINCRISTINE [Suspect]
     Indication: DIFFUSE LARGE B-CELL LYMPHOMA
     Route: 040
     Dates: start: 20120514
  6. VINCRISTINE [Suspect]
     Route: 040
     Dates: start: 20121010
  7. PREDNISONE [Suspect]
     Indication: DIFFUSE LARGE B-CELL LYMPHOMA
     Route: 048
     Dates: start: 20120514
  8. PREDNISONE [Suspect]
     Route: 048
     Dates: start: 20121015
  9. PERINDOPRIL ERBUMINE [Concomitant]
     Indication: HYPERTENSION
     Route: 065
  10. METOPROLOL TARTRATE [Concomitant]
     Indication: HYPERTENSION
     Route: 065
  11. CLOPIDOGREL BISULFATE [Concomitant]
     Indication: ARTERIOSCLEROSIS
     Route: 065
  12. BACILLUS CLAUSII [Concomitant]
     Indication: DISBACTERIOSIS
     Route: 065
  13. LOPERAMIDE HYDROCHLORIDE [Concomitant]
     Indication: POST GASTRIC SURGERY SYNDROME
     Route: 065
  14. ALLOPURINOL [Concomitant]
     Indication: HYPERURICAEMIA
     Route: 065
  15. MEGESTROL ACETATE [Concomitant]
     Indication: DECREASED APPETITE
     Route: 065
     Dates: start: 20121114
  16. TIOTROPIUM BROMIDE [Concomitant]
     Indication: CHRONIC OBSTRUCTIVE PULMONARY DISEASE
     Route: 065
     Dates: start: 20121221
  17. INDACATEROL MALEATE [Concomitant]
     Indication: CHRONIC OBSTRUCTIVE PULMONARY DISEASE
     Route: 065
     Dates: start: 20121221
  18. FENOTEROL/IPRATROPIUM BROMIDE [Concomitant]
     Indication: CHRONIC OBSTRUCTIVE PULMONARY DISEASE
     Route: 065
     Dates: start: 20121221
  19. LOPERAMIDE HYDROCHLORIDE [Concomitant]
     Indication: DIARRHOEA
     Route: 065
     Dates: start: 20130124
  20. RIFAMPICIN [Concomitant]
     Indication: TUBERCULOSIS
     Route: 065
     Dates: start: 20130124
  21. ISONIAZID [Concomitant]
     Indication: TUBERCULOSIS
     Route: 065
     Dates: start: 20130124
  22. PYRAZINAMIDE [Concomitant]
     Indication: TUBERCULOSIS
     Route: 065
     Dates: start: 20130124
  23. ETHAMBUTOL HYDROCHLORIDE [Concomitant]
     Indication: TUBERCULOSIS
     Route: 065
     Dates: start: 20130124
  24. POTASSIUM CHLORIDE [Concomitant]
     Indication: HYPOKALAEMIA
     Route: 065
     Dates: start: 20130312
  25. AMLODIPINE BESILATE [Concomitant]
     Indication: HYPERTENSION
     Route: 065
  26. MILGAMMA N [Concomitant]
     Indication: NEURALGIA
     Route: 065
     Dates: start: 20121114
  27. CATAFLAM [Concomitant]
     Indication: BONE PAIN
     Route: 065
     Dates: start: 20130124

REACTIONS (1)
  - Lung adenocarcinoma [Unknown]
